FAERS Safety Report 4631260-X (Version None)
Quarter: 2005Q2

REPORT INFORMATION
  Report Type: 
  Country: None (occurrence: None)
  Receive Date: 20050408
  Receipt Date: 20030407
  Transmission Date: 20051028
  Serious: Yes (Disabling)
  Sender: FDA-Public Use
  Company Number: US-MERCK-0304USA00818

PATIENT
  Age: 34 Year
  Sex: Male
  Weight: 95 kg

DRUGS (5)
  1. VIOXX [Suspect]
     Indication: BACK INJURY
     Route: 048
     Dates: start: 20010626, end: 20010101
  2. NAPROXEN [Concomitant]
     Route: 065
     Dates: end: 20010626
  3. SKELAXIN [Concomitant]
     Route: 065
     Dates: end: 20010626
  4. FLEXERIL [Concomitant]
     Indication: BACK INJURY
     Route: 065
     Dates: start: 20010626
  5. THERAGESIC [Concomitant]
     Indication: BACK INJURY
     Route: 061
     Dates: start: 20010626

REACTIONS (6)
  - BLOOD CHOLESTEROL INCREASED [None]
  - DEPRESSION [None]
  - DISTURBANCE IN ATTENTION [None]
  - EMOTIONAL DISTRESS [None]
  - HYPERTENSION [None]
  - STRESS [None]
